FAERS Safety Report 21114122 (Version 2)
Quarter: 2022Q3

REPORT INFORMATION
  Report Type: Spontaneous
  Country: IR (occurrence: IR)
  Receive Date: 20220721
  Receipt Date: 20220804
  Transmission Date: 20221027
  Serious: Yes (Other)
  Sender: FDA-Public Use
  Company Number: IR-SA-2022SA279292

PATIENT
  Age: 2 Year
  Sex: Male

DRUGS (3)
  1. AZITHROMYCIN [Suspect]
     Active Substance: AZITHROMYCIN
     Indication: Gastrointestinal haemorrhage
  2. DEXAMETHASONE [Suspect]
     Active Substance: DEXAMETHASONE
     Indication: Brain oedema
  3. SEVELAMER [Suspect]
     Active Substance: SEVELAMER
     Indication: Peritoneal dialysis

REACTIONS (4)
  - Generalised oedema [Unknown]
  - Seizure [Unknown]
  - Hyperoxaluria [Unknown]
  - Off label use [Unknown]
